FAERS Safety Report 5983033-3 (Version None)
Quarter: 2008Q4

REPORT INFORMATION
  Report Type: 
  Country: None (occurrence: None)
  Receive Date: 20081208
  Receipt Date: 20081205
  Transmission Date: 20090506
  Serious: Yes (Life-Threatening)
  Sender: FDA-Public Use
  Company Number: ES-BRISTOL-MYERS SQUIBB COMPANY-14398580

PATIENT
  Age: 48 Year
  Sex: Male

DRUGS (5)
  1. REYATAZ [Suspect]
     Indication: HIV INFECTION
     Route: 048
     Dates: start: 20040220
  2. RITONAVIR [Suspect]
     Dates: start: 20040220
  3. NEVIRAPINE [Suspect]
     Dates: start: 20040220
  4. GEMFIBROZIL [Concomitant]
  5. REPAGLINIDE [Concomitant]

REACTIONS (2)
  - NEPHROLITHIASIS [None]
  - RENAL FAILURE [None]
